FAERS Safety Report 7860946-9 (Version None)
Quarter: 2011Q4

REPORT INFORMATION
  Report Type: 
  Country: None (occurrence: None)
  Receive Date: 20111027
  Receipt Date: 20111024
  Transmission Date: 20120403
  Serious: Yes (Other)
  Sender: FDA-Public Use
  Company Number: US-ABBOTT-08P-163-0462378-00

PATIENT
  Age: 29 Year
  Sex: Female

DRUGS (1)
  1. LUPRON DEPOT [Suspect]
     Indication: ENDOMETRIOSIS
     Route: 050
     Dates: start: 20071001

REACTIONS (10)
  - DYSARTHRIA [None]
  - GAIT DISTURBANCE [None]
  - HYPOAESTHESIA [None]
  - INJURY [None]
  - PAIN [None]
  - OSTEOPOROSIS [None]
  - FATIGUE [None]
  - BONE LOSS [None]
  - VISION BLURRED [None]
  - NERVOUS SYSTEM DISORDER [None]
